FAERS Safety Report 7502444-8 (Version None)
Quarter: 2011Q2

REPORT INFORMATION
  Report Type: 
  Country: None (occurrence: None)
  Receive Date: 20110525
  Receipt Date: 20110512
  Transmission Date: 20111010
  Serious: Yes (Other)
  Sender: FDA-Public Use
  Company Number: AU-JNJFOC-20110507378

PATIENT
  Sex: Male
  Weight: 48 kg

DRUGS (1)
  1. RISPERDAL [Suspect]
     Indication: AGGRESSION
     Dosage: 0.75 MG IN MORNING AND 1 MG AT 3:30 PM
     Route: 048

REACTIONS (4)
  - PRODUCT TASTE ABNORMAL [None]
  - HYPERSOMNIA [None]
  - ABNORMAL BEHAVIOUR [None]
  - INCORRECT DRUG ADMINISTRATION DURATION [None]
